FAERS Safety Report 4971196-8 (Version None)
Quarter: 2006Q1

REPORT INFORMATION
  Report Type: 
  Country: None (occurrence: None)
  Receive Date: 20060216
  Receipt Date: 20040116
  Transmission Date: 20060701
  Serious: Yes (Other)
  Sender: FDA-Public Use
  Company Number: 2003IM001293

PATIENT
  Age: 62 Year
  Sex: Female
  Weight: 64.4108 kg

DRUGS (15)
  1. INTERFERON GAMMA-1B [Suspect]
     Indication: OVARIAN CANCER
     Dosage: 100 UG, TIW, SUBCUTANEOUS
     Route: 058
     Dates: start: 20031118, end: 20031222
  2. CARBOPLATIN [Suspect]
     Indication: OVARIAN CANCER
     Dosage: 500 MG, Q3W, INTRAVENOUS
     Route: 042
     Dates: start: 20031118, end: 20031209
  3. PACLITAXEL [Suspect]
     Indication: OVARIAN CANCER
     Dosage: 290 MG, Q3W, INTRAVENOUS
     Route: 042
     Dates: start: 20031118, end: 20031209
  4. PROZAC [Concomitant]
  5. XANAX [Concomitant]
  6. TYLENOL (CAPLET) [Concomitant]
  7. IBUPROFEN [Concomitant]
  8. TAGAMET [Concomitant]
  9. BENADRYL [Concomitant]
  10. ANZEMET [Concomitant]
  11. DECADRON [Concomitant]
  12. SUDAFED [Concomitant]
  13. MULTIVITAMIN [Concomitant]
  14. ZOFRAN [Concomitant]
  15. COLACE [Concomitant]

REACTIONS (1)
  - NEUTROPENIA [None]
